FAERS Safety Report 16885951 (Version 3)
Quarter: 2019Q4

REPORT INFORMATION
  Report Type: Spontaneous
  Country: US (occurrence: US)
  Receive Date: 20191004
  Receipt Date: 20191114
  Transmission Date: 20200122
  Serious: Yes (Hospitalization)
  Sender: FDA-Public Use
  Company Number: US-VERTEX PHARMACEUTICALS-2019-009420

PATIENT
  Age: 25 Year
  Sex: Female
  Weight: 70 kg

DRUGS (9)
  1. TOBI [Concomitant]
     Active Substance: TOBRAMYCIN
  2. PRILOSEC [Concomitant]
     Active Substance: OMEPRAZOLE MAGNESIUM
  3. HYPERTONIC SALINE SOLUTION [Concomitant]
     Active Substance: SODIUM CHLORIDE
  4. XOLAIR [Concomitant]
     Active Substance: OMALIZUMAB
  5. SYMDEKO [Suspect]
     Active Substance: IVACAFTOR\TEZACAFTOR
     Indication: CYSTIC FIBROSIS
     Dosage: 100MG TEZACAFTOR/150MG IVACAFTOR ; 150MG IVACAFTOR, BID
     Route: 048
     Dates: start: 20180913
  6. XOPENEX [Concomitant]
     Active Substance: LEVALBUTEROL HYDROCHLORIDE
  7. CALCIUM + VITAMIN D [CALCIUM LACTATE;CALCIUM PHOSPHATE;COLECALCIFEROL] [Concomitant]
  8. CREON [Concomitant]
     Active Substance: PANCRELIPASE AMYLASE\PANCRELIPASE LIPASE\PANCRELIPASE PROTEASE
  9. DORNASE [Concomitant]
     Active Substance: STREPTODORNASE\STREPTOKINASE

REACTIONS (2)
  - Haemoptysis [Recovered/Resolved]
  - Infective pulmonary exacerbation of cystic fibrosis [Unknown]

NARRATIVE: CASE EVENT DATE: 20190927
